FAERS Safety Report 7246724-2 (Version None)
Quarter: 2011Q1

REPORT INFORMATION
  Report Type: 
  Country: None (occurrence: None)
  Receive Date: 20110127
  Receipt Date: 20110117
  Transmission Date: 20110831
  Serious: Yes (Life-Threatening, Other)
  Sender: FDA-Public Use
  Company Number: JP-SHIRE-SPV1-2010-01806

PATIENT
  Age: 60 Year
  Sex: Male

DRUGS (16)
  1. FOSRENOL [Suspect]
     Indication: HYPERPHOSPHATAEMIA
     Dosage: UNK, UNK
     Route: 048
     Dates: start: 20090701, end: 20100801
  2. NESPO [Concomitant]
     Dosage: 10 ?G, 1X/DAY:QD
     Dates: start: 20090922, end: 20091202
  3. FESIN [Concomitant]
     Dosage: 40MG DAILY
     Route: 042
     Dates: start: 20100820, end: 20100908
  4. FESIN [Concomitant]
     Indication: ANAEMIA
     Dosage: 40MG DAILY
     Route: 042
     Dates: start: 20090720, end: 20090904
  5. EPOGIN [Concomitant]
     Dosage: 1500 IU, UNK
     Route: 042
     Dates: start: 20100125, end: 20100201
  6. EPOGIN [Concomitant]
     Dosage: 1500 IU, UNK
     Route: 042
     Dates: start: 20100702, end: 20100726
  7. FESIN [Concomitant]
     Dosage: 40MG DAILY
     Dates: start: 20100609, end: 20100707
  8. EPOGIN [Concomitant]
     Dosage: 1500 IU, UNK
     Route: 042
     Dates: start: 20100219, end: 20100701
  9. EPOGIN [Concomitant]
     Dosage: 1500 IU, UNK
     Route: 042
     Dates: start: 20100908, end: 20100924
  10. NESPO [Concomitant]
     Dosage: 15 ?G, 1X/DAY:QD
     Route: 042
     Dates: start: 20090914, end: 20090919
  11. EPOGIN [Concomitant]
     Dosage: 1500 IU, UNK
     Route: 042
     Dates: start: 20100820, end: 20100906
  12. EPOGIN [Concomitant]
     Dosage: 1500 IU, UNK
     Route: 042
     Dates: start: 20100203, end: 20100217
  13. FESIN [Concomitant]
     Dosage: 40MG DAILY
     Dates: start: 20091204, end: 20100129
  14. EPOGIN [Concomitant]
     Dosage: 3000 IU, UNK
     Dates: start: 20090708, end: 20090911
  15. EPOGIN [Concomitant]
     Dosage: 3000 IU, UNK
     Route: 042
     Dates: start: 20100728, end: 20100818
  16. EPOGIN [Concomitant]
     Dosage: 3000 IU, UNK
     Route: 042
     Dates: start: 20091204, end: 20100124

REACTIONS (1)
  - ANAEMIA [None]
